FAERS Safety Report 22122443 (Version 1)
Quarter: 2023Q1

REPORT INFORMATION
  Report Type: Spontaneous
  Country: US (occurrence: US)
  Receive Date: 20230321
  Receipt Date: 20230321
  Transmission Date: 20230418
  Serious: No
  Sender: FDA-Public Use
  Company Number: US-TEVA-2023-US-2867713

PATIENT

DRUGS (3)
  1. QVAR [Suspect]
     Active Substance: BECLOMETHASONE DIPROPIONATE
     Indication: Product used for unknown indication
     Route: 065
  2. QVAR [Suspect]
     Active Substance: BECLOMETHASONE DIPROPIONATE
  3. QVAR [Suspect]
     Active Substance: BECLOMETHASONE DIPROPIONATE

REACTIONS (2)
  - SARS-CoV-2 test positive [Unknown]
  - Drug delivery system issue [Unknown]

NARRATIVE: CASE EVENT DATE: 20230301
